FAERS Safety Report 8089450 (Version 3)
Quarter: 2013Q4

REPORT INFORMATION
  Report Type: Spontaneous
  Country: US (occurrence: None)
  Receive Date: 20110808
  Receipt Date: 20131001
  Transmission Date: 20140711
  Serious: Yes (Death, Hospitalization, Other)
  Sender: FDA-Public Use
  Company Number: ACO_26146_2011

PATIENT
  Age: 61 Year
  Sex: Female
  Weight: 108.8 kg

DRUGS (7)
  1. AMPYRA [Suspect]
     Indication: MULTIPLE SCLEROSIS
     Dosage: 10 MG, BID, ORAL
     Route: 048
     Dates: start: 201009, end: 20110802
  2. BETASERON [Suspect]
     Indication: PRODUCT USED FOR UNKNOWN INDICATION
  3. COPAXONE [Suspect]
     Indication: PRODUCT USED FOR UNKNOWN INDICATION
  4. TIZANIDINE HYDROCHLORIDE [Concomitant]
  5. BACLOFEN [Concomitant]
  6. CALCIUM CARBONATE [Concomitant]
  7. VITAMIN D NOS (VITAMIN D NOS) [Concomitant]

REACTIONS (6)
  - Hallucinations, mixed [None]
  - Cardio-respiratory arrest [None]
  - Unresponsive to stimuli [None]
  - Lung disorder [None]
  - Neoplasm malignant [None]
  - Pneumonia [None]
